FAERS Safety Report 9087422 (Version 1)
Quarter: 2013Q1

REPORT INFORMATION
  Report Type: Spontaneous
  Country: FR (occurrence: FR)
  Receive Date: 20130131
  Receipt Date: 20130131
  Transmission Date: 20140127
  Serious: Yes (Hospitalization)
  Sender: FDA-Public Use
  Company Number: FR-PFIZER INC-2013031107

PATIENT
  Age: 75 Year
  Sex: Female

DRUGS (11)
  1. CAMPTO [Suspect]
     Indication: RECTAL CANCER METASTATIC
     Dosage: UNK 7 COURSES
     Route: 042
     Dates: start: 20120821, end: 20121114
  2. CALCIUM FOLINATE [Suspect]
     Indication: RECTAL CANCER METASTATIC
     Dosage: UNK
     Route: 042
     Dates: start: 20120821, end: 20121114
  3. AVASTIN [Concomitant]
     Indication: RECTAL CANCER METASTATIC
  4. FLUOROURACIL [Concomitant]
     Indication: RECTAL CANCER METASTATIC
     Dosage: UNK
     Dates: start: 20120821
  5. XANAX [Concomitant]
     Dosage: 2 DF DAILY
  6. DAFALGAN [Concomitant]
     Dosage: UNK
  7. IMODIUM [Concomitant]
     Dosage: UNK
  8. FORLAX [Concomitant]
     Dosage: UNK
  9. EMEND [Concomitant]
     Indication: PREMEDICATION
     Dosage: 125 MG
  10. ZOPHREN [Concomitant]
     Indication: PREMEDICATION
     Dosage: 8 MG
  11. SOLU-MEDROL [Concomitant]
     Indication: PREMEDICATION
     Dosage: 80 MG

REACTIONS (3)
  - Erythema [Recovered/Resolved]
  - Pyrexia [Recovered/Resolved]
  - C-reactive protein increased [Recovered/Resolved]
